FAERS Safety Report 7214945-0 (Version None)
Quarter: 2011Q1

REPORT INFORMATION
  Report Type: 
  Country: None (occurrence: None)
  Receive Date: 20110107
  Receipt Date: 20100601
  Transmission Date: 20110831
  Serious: No
  Sender: FDA-Public Use
  Company Number: A0862251A

PATIENT
  Age: 34 Year
  Sex: Female

DRUGS (2)
  1. LOVAZA [Suspect]
     Dosage: 1G TWICE PER DAY
     Route: 048
     Dates: start: 20100101, end: 20100526
  2. OCELLA [Concomitant]

REACTIONS (1)
  - MYALGIA [None]
